FAERS Safety Report 21589837 (Version 1)
Quarter: 2022Q4

REPORT INFORMATION
  Report Type: Spontaneous
  Country: JP (occurrence: JP)
  Receive Date: 20221114
  Receipt Date: 20221114
  Transmission Date: 20230113
  Serious: Yes (Hospitalization)
  Sender: FDA-Public Use
  Company Number: JP-MYLANLABS-2022M1122965

PATIENT
  Age: 48 Year
  Sex: Female

DRUGS (10)
  1. LIDOCAINE [Suspect]
     Active Substance: LIDOCAINE
     Indication: General anaesthesia
     Dosage: 8ML INTRAORAL INJECTION OF 1% LIDOCAINE (80MG) WITH 1:100000 EPINEPHRINE (80MICROG). IT WAS INFILTRA
  2. EPINEPHRINE [Suspect]
     Active Substance: EPINEPHRINE
     Indication: General anaesthesia
     Dosage: 8ML INTRAORAL INJECTION OF 1% LIDOCAINE (80MG) WITH 1:100000 EPINEPHRINE (80MICROG). IT WAS INFILTRA
  3. ATROPINE [Concomitant]
     Active Substance: ATROPINE
     Indication: Premedication
     Dosage: 0.2 MILLIGRAM
     Route: 042
  4. MIDAZOLAM [Concomitant]
     Active Substance: MIDAZOLAM
     Indication: Premedication
     Dosage: 3 MILLIGRAM
     Route: 042
  5. PROPOFOL [Concomitant]
     Active Substance: PROPOFOL
     Indication: Induction of anaesthesia
     Dosage: 100 MILLIGRAM
     Route: 065
  6. FENTANYL [Concomitant]
     Active Substance: FENTANYL
     Indication: Induction of anaesthesia
     Dosage: 50 MICROGRAM
     Route: 065
  7. FENTANYL [Concomitant]
     Active Substance: FENTANYL
     Indication: Maintenance of anaesthesia
  8. ROCURONIUM [Concomitant]
     Active Substance: ROCURONIUM BROMIDE
     Indication: Induction of anaesthesia
     Dosage: 40 MILLIGRAM
     Route: 065
  9. SEVOFLURANE [Concomitant]
     Active Substance: SEVOFLURANE
     Indication: Maintenance of anaesthesia
     Dosage: 1% TO 1.5% IN OXYGEN 40% AND AIR 60%
     Route: 065
  10. REMIFENTANIL [Concomitant]
     Active Substance: REMIFENTANIL
     Indication: Maintenance of anaesthesia
     Dosage: 0.2 MICROGRAM/KILOGRAM, QMINUTE
     Route: 042

REACTIONS (3)
  - Accelerated idioventricular rhythm [Recovered/Resolved]
  - Presyncope [Recovered/Resolved]
  - Injection site pain [Recovered/Resolved]
